FAERS Safety Report 4537069-X (Version None)
Quarter: 2004Q4

REPORT INFORMATION
  Report Type: 
  Country: None (occurrence: None)
  Receive Date: 20041221
  Receipt Date: 20041215
  Transmission Date: 20050328
  Serious: Yes (Death)
  Sender: FDA-Public Use
  Company Number: 2004UW25683

PATIENT
  Age: 59 Year
  Sex: Female

DRUGS (1)
  1. CRESTOR [Suspect]
     Dosage: 10 MG PO
     Route: 048

REACTIONS (1)
  - TREATMENT NONCOMPLIANCE [None]
